FAERS Safety Report 20160472 (Version 1)
Quarter: 2021Q4

REPORT INFORMATION
  Report Type: Spontaneous
  Country: US (occurrence: US)
  Receive Date: 20211208
  Receipt Date: 20211208
  Transmission Date: 20220303
  Serious: Yes (Death, Life-Threatening, Hospitalization, Other)
  Sender: FDA-Public Use
  Company Number: US-drreddys-SPO/USA/21/0144500

PATIENT
  Age: 56 Year
  Sex: Male

DRUGS (1)
  1. TESTOSTERONE [Suspect]
     Active Substance: TESTOSTERONE
     Indication: Hypogonadism male

REACTIONS (6)
  - Metastases to peritoneum [Fatal]
  - Sepsis [Fatal]
  - Renal failure [Fatal]
  - Metastasis [Fatal]
  - Ascites [Fatal]
  - Cholangiocarcinoma [Fatal]
